FAERS Safety Report 4457885-2 (Version None)
Quarter: 2004Q3

REPORT INFORMATION
  Report Type: 
  Country: None (occurrence: None)
  Receive Date: 20040917
  Receipt Date: 20040621
  Transmission Date: 20050211
  Serious: Yes (Other)
  Sender: FDA-Public Use
  Company Number: US-JNJFOC-20040606016

PATIENT
  Age: 40 Year
  Sex: Female

DRUGS (4)
  1. TOPAMAX [Suspect]
     Indication: AFFECTIVE DISORDER
     Dosage: 50 MG ; 25 MG  : IN 1 DAY, ORAL
     Route: 048
     Dates: start: 20040601, end: 20040601
  2. TOPAMAX [Suspect]
     Indication: AFFECTIVE DISORDER
     Dosage: 50 MG ; 25 MG  : IN 1 DAY, ORAL
     Route: 048
     Dates: start: 20040601
  3. PAXIL [Concomitant]
  4. KLONOPIN [Concomitant]

REACTIONS (2)
  - ANGLE CLOSURE GLAUCOMA [None]
  - MYOPIA [None]
